FAERS Safety Report 6626191-X (Version None)
Quarter: 2010Q1

REPORT INFORMATION
  Report Type: 
  Country: None (occurrence: None)
  Receive Date: 20100309
  Receipt Date: 20100309
  Transmission Date: 20100710
  Serious: No
  Sender: FDA-Public Use
  Company Number: None

PATIENT
  Age: 36 Year
  Sex: Female
  Weight: 69.8 kg

DRUGS (1)
  1. PROPOFOL [Suspect]
     Indication: ANAESTHESIA
     Dosage: 50MG INDUCTION OF TIVA IV
     Route: 042
     Dates: start: 20100304, end: 20100304

REACTIONS (2)
  - BURNING SENSATION [None]
  - PRODUCT QUALITY ISSUE [None]
